FAERS Safety Report 12059405 (Version 1)
Quarter: 2016Q1

REPORT INFORMATION
  Report Type: Spontaneous
  Country: TR (occurrence: TR)
  Receive Date: 20160210
  Receipt Date: 20160210
  Transmission Date: 20160526
  Serious: Yes (Hospitalization)
  Sender: FDA-Public Use
  Company Number: TR-ACTAVIS-2016-02132

PATIENT
  Age: 47 Year
  Sex: Female

DRUGS (1)
  1. AMANTADINE HCL [Suspect]
     Active Substance: AMANTADINE HYDROCHLORIDE
     Indication: PARKINSONISM
     Dosage: 200 MG, SINGLE
     Route: 065

REACTIONS (1)
  - Ventricular tachycardia [Recovered/Resolved]
